FAERS Safety Report 7549161-6 (Version None)
Quarter: 2011Q2

REPORT INFORMATION
  Report Type: 
  Country: None (occurrence: None)
  Receive Date: 20110615
  Receipt Date: 20110601
  Transmission Date: 20111010
  Serious: Yes (Other)
  Sender: FDA-Public Use
  Company Number: PHHY2011US49213

PATIENT
  Sex: Female

DRUGS (2)
  1. SANDOSTATIN LAR [Suspect]
     Dosage: 30 MG, QMO
     Dates: start: 20110218
  2. SANDOSTATIN LAR [Suspect]
     Dosage: 30 MG, QMO

REACTIONS (3)
  - BONE PAIN [None]
  - DYSPHAGIA [None]
  - FEELING ABNORMAL [None]
